FAERS Safety Report 8772699 (Version 3)
Quarter: 2012Q4

REPORT INFORMATION
  Report Type: 
  Country: US (occurrence: US)
  Receive Date: 20120905
  Receipt Date: 20121031
  Transmission Date: 20130627
  Serious: Yes (Hospitalization)
  Sender: FDA-Public Use
  Company Number: US-JNJFOC-20120815072

PATIENT
  Sex: Male
  Weight: 76.2 kg

DRUGS (7)
  1. STELARA [Suspect]
     Indication: PSORIASIS
     Route: 058
     Dates: start: 201012
  2. LIPITOR [Concomitant]
     Indication: BLOOD CHOLESTEROL
     Route: 048
  3. ASA [Concomitant]
     Indication: MYOCARDIAL INFARCTION
     Route: 048
  4. ATENOLOL [Concomitant]
     Indication: BLOOD PRESSURE
     Route: 048
  5. LISINOPRIL [Concomitant]
     Indication: BLOOD PRESSURE
     Route: 048
  6. PLAVIX [Concomitant]
     Indication: MYOCARDIAL INFARCTION
     Route: 048
  7. ZETIA [Concomitant]
     Indication: BLOOD CHOLESTEROL
     Route: 048

REACTIONS (2)
  - Arthralgia [Recovered/Resolved]
  - Nervous system disorder [Recovered/Resolved]
